FAERS Safety Report 15540661 (Version 3)
Quarter: 2019Q1

REPORT INFORMATION
  Report Type: Spontaneous
  Country: DE (occurrence: DE)
  Receive Date: 20181023
  Receipt Date: 20190131
  Transmission Date: 20190417
  Serious: Yes (Hospitalization, Other)
  Sender: FDA-Public Use
  Company Number: DE-AUROBINDO-AUR-APL-2018-051558

PATIENT
  Age: 55 Year
  Sex: Male
  Weight: 93 kg

DRUGS (2)
  1. METHADONE [Concomitant]
     Active Substance: METHADONE HYDROCHLORIDE
     Indication: PRODUCT USED FOR UNKNOWN INDICATION
     Dosage: UNK
     Route: 065
  2. BUPIVACAINE. [Suspect]
     Active Substance: BUPIVACAINE
     Indication: SPINAL ANAESTHESIA
     Dosage: 2.5 MILLILITER, DAILY DOSE: 2.5 ML MILLILITRE(S) EVERY TOTAL ; IN TOTAL
     Route: 037

REACTIONS (3)
  - Sensorimotor disorder [Not Recovered/Not Resolved]
  - Paraplegia [Not Recovered/Not Resolved]
  - Myelitis [Not Recovered/Not Resolved]

NARRATIVE: CASE EVENT DATE: 20180905
